FAERS Safety Report 18976033 (Version 1)
Quarter: 2021Q1

REPORT INFORMATION
  Report Type: Spontaneous
  Country: FR (occurrence: FR)
  Receive Date: 20210305
  Receipt Date: 20210305
  Transmission Date: 20210420
  Serious: Yes (Hospitalization, Other)
  Sender: FDA-Public Use
  Company Number: FR-AUROBINDO-AUR-APL-2021-009423

PATIENT
  Sex: Male

DRUGS (1)
  1. LEVOFLOXACIN. [Suspect]
     Active Substance: LEVOFLOXACIN
     Indication: PRODUCT USED FOR UNKNOWN INDICATION
     Dosage: UNK
     Route: 065
     Dates: start: 20200106

REACTIONS (8)
  - Tendon pain [Unknown]
  - Myalgia [Unknown]
  - Pain in extremity [Unknown]
  - Muscle strain [Unknown]
  - Fatigue [Unknown]
  - Tendon disorder [Unknown]
  - Influenza [Unknown]
  - Tendon rupture [Unknown]

NARRATIVE: CASE EVENT DATE: 20200106
